FAERS Safety Report 18505229 (Version 2)
Quarter: 2024Q3

REPORT INFORMATION
  Report Type: Spontaneous
  Country: NL (occurrence: NL)
  Receive Date: 20201116
  Receipt Date: 20240919
  Transmission Date: 20241017
  Serious: Yes (Hospitalization, Other)
  Sender: ROCHE
  Company Number: None

PATIENT
  Age: 44 Year
  Sex: Male

DRUGS (9)
  1. MYCOPHENOLATE MOFETIL [Suspect]
     Active Substance: MYCOPHENOLATE MOFETIL
     Indication: Product used for unknown indication
     Route: 065
  2. AZATHIOPRINE [Suspect]
     Active Substance: AZATHIOPRINE
     Indication: Immunosuppression
     Route: 065
  3. BASILIXIMAB [Suspect]
     Active Substance: BASILIXIMAB
     Indication: Immunosuppression
     Route: 065
  4. TACROLIMUS [Suspect]
     Active Substance: TACROLIMUS
     Indication: Immunosuppression
     Route: 065
  5. DEPO-MEDROL [Suspect]
     Active Substance: METHYLPREDNISOLONE ACETATE
     Indication: Immunosuppression
     Dosage: 3 DAYS OF 1000 MG ORAAL
     Route: 048
  6. PREDNISOLONE [Suspect]
     Active Substance: PREDNISOLONE
     Indication: Immunosuppression
     Route: 065
  7. PREDNISOLONE [Suspect]
     Active Substance: PREDNISOLONE
     Route: 065
  8. METHYLPREDNISOLONE [Suspect]
     Active Substance: METHYLPREDNISOLONE
     Indication: Product used for unknown indication
     Dosage: PULSE THERAPY (3 DAYS OF 1000 MG)
     Route: 065
  9. MABTHERA [Concomitant]
     Active Substance: RITUXIMAB
     Route: 065

REACTIONS (12)
  - Sensory loss [Recovered/Resolved]
  - Transplant rejection [Recovering/Resolving]
  - Meningioma malignant [Recovered/Resolved]
  - Paralysis [Recovered/Resolved]
  - Post transplant lymphoproliferative disorder [Recovered/Resolved]
  - Musculoskeletal pain [Recovered/Resolved]
  - Monoparesis [Recovering/Resolving]
  - Muscular weakness [Recovered/Resolved]
  - Sensory disturbance [Recovered/Resolved]
  - Arthralgia [Recovered/Resolved]
  - Spinal cord compression [Recovered/Resolved]
  - Lymphadenopathy [Unknown]
